FAERS Safety Report 24049545 (Version 1)
Quarter: 2024Q3

REPORT INFORMATION
  Report Type: Spontaneous
  Country: US (occurrence: US)
  Receive Date: 20240704
  Receipt Date: 20240704
  Transmission Date: 20241016
  Serious: No
  Sender: TAKEDA
  Company Number: US-TAKEDA-2024TUS067221

PATIENT

DRUGS (1)
  1. HUMAN IMMUNOGLOBULIN G [Suspect]
     Active Substance: HUMAN IMMUNOGLOBULIN G
     Indication: Norovirus infection
     Dosage: UNK
     Route: 065

REACTIONS (2)
  - Insurance issue [Unknown]
  - Off label use [Unknown]
